FAERS Safety Report 7366021-4 (Version None)
Quarter: 2011Q1

REPORT INFORMATION
  Report Type: 
  Country: None (occurrence: None)
  Receive Date: 20110322
  Receipt Date: 20110308
  Transmission Date: 20110831
  Serious: Yes (Hospitalization, Other)
  Sender: FDA-Public Use
  Company Number: FR-MYLANLABS-2011S1002445

PATIENT
  Age: 75 Year
  Sex: Female
  Weight: 90 kg

DRUGS (1)
  1. METFORMINE [Suspect]
     Indication: TYPE 2 DIABETES MELLITUS
     Route: 048
     Dates: start: 20110101

REACTIONS (2)
  - NAUSEA [None]
  - TACHYCARDIA PAROXYSMAL [None]
